FAERS Safety Report 20950814 (Version 2)
Quarter: 2022Q3

REPORT INFORMATION
  Report Type: Spontaneous
  Country: HU (occurrence: HU)
  Receive Date: 20220613
  Receipt Date: 20220707
  Transmission Date: 20221026
  Serious: Yes (Other)
  Sender: FDA-Public Use
  Company Number: HU-PFIZER INC-202200776591

PATIENT
  Sex: Female
  Weight: 2.67 kg

DRUGS (7)
  1. COMIRNATY [Suspect]
     Active Substance: TOZINAMERAN
     Indication: COVID-19 immunisation
     Dosage: DOSE 3 (BOOSTER), SINGLE
     Route: 064
     Dates: start: 20210930, end: 20210930
  2. MEDROL [Suspect]
     Active Substance: METHYLPREDNISOLONE
     Indication: Autoimmune disorder
     Dosage: 4 MG (1X1/1X2/1X1/1X0.5)
     Route: 064
     Dates: start: 20210712, end: 20220512
  3. PLAQUENIL [Suspect]
     Active Substance: HYDROXYCHLOROQUINE SULFATE
     Dosage: 1X1
     Route: 064
     Dates: start: 20210712, end: 20220324
  4. ESCITALOPRAM OXALATE [Suspect]
     Active Substance: ESCITALOPRAM OXALATE
     Indication: Perinatal depression
     Dosage: 1X.05
     Route: 064
     Dates: start: 20200217
  5. ENOXAPARIN SODIUM [Suspect]
     Active Substance: ENOXAPARIN SODIUM
     Indication: COVID-19
     Dosage: 1X1
     Route: 064
     Dates: start: 20220226, end: 20220511
  6. OMEPRAZOLE [Suspect]
     Active Substance: OMEPRAZOLE
     Dosage: 1X1
     Route: 064
     Dates: start: 20210712, end: 20220114
  7. ASPIRIN [Suspect]
     Active Substance: ASPIRIN
     Indication: Autoimmune disorder
     Dosage: 1X1
     Route: 064
     Dates: start: 20210712, end: 20220114

REACTIONS (3)
  - Abnormal cord insertion [Unknown]
  - Meconium in amniotic fluid [Unknown]
  - Pulmonary malformation [Unknown]

NARRATIVE: CASE EVENT DATE: 20220216
